FAERS Safety Report 5312329-3 (Version None)
Quarter: 2007Q2

REPORT INFORMATION
  Report Type: 
  Country: None (occurrence: None)
  Receive Date: 20070430
  Receipt Date: 20061113
  Transmission Date: 20071010
  Serious: No
  Sender: FDA-Public Use
  Company Number: 2006UW23828

PATIENT
  Age: 67 Year
  Sex: Male
  Weight: 113.4 kg

DRUGS (3)
  1. NEXIUM [Suspect]
     Indication: GASTROOESOPHAGEAL REFLUX DISEASE
     Route: 048
     Dates: start: 20061001
  2. DIOVAN [Concomitant]
  3. CELEBREX [Concomitant]

REACTIONS (2)
  - ABDOMINAL PAIN [None]
  - LIBIDO DECREASED [None]
